FAERS Safety Report 7220899-3 (Version None)
Quarter: 2011Q1

REPORT INFORMATION
  Report Type: 
  Country: None (occurrence: None)
  Receive Date: 20110112
  Receipt Date: 20101015
  Transmission Date: 20110831
  Serious: No
  Sender: FDA-Public Use
  Company Number: A0887085A

PATIENT
  Age: 79 Year
  Sex: Male

DRUGS (3)
  1. ZOCOR [Concomitant]
  2. CELEBREX [Concomitant]
  3. JALYN [Suspect]
     Indication: BENIGN PROSTATIC HYPERPLASIA
     Dosage: 1CAP UNKNOWN
     Route: 065
     Dates: start: 20100929

REACTIONS (4)
  - BACK PAIN [None]
  - NECK PAIN [None]
  - JOINT RANGE OF MOTION DECREASED [None]
  - MUSCLE SPASMS [None]
